FAERS Safety Report 19505861 (Version 1)
Quarter: 2021Q3

REPORT INFORMATION
  Report Type: Spontaneous
  Country: US (occurrence: US)
  Receive Date: 20210707
  Receipt Date: 20210707
  Transmission Date: 20211014
  Serious: No
  Sender: FDA-Public Use
  Company Number: None

PATIENT
  Age: 58 Year
  Sex: Female

DRUGS (1)
  1. CAPECITABINE TAB 500MG [Suspect]
     Active Substance: CAPECITABINE
     Indication: COLON CANCER
     Dosage: OTHER
     Route: 048
     Dates: start: 202012

REACTIONS (2)
  - Atrial thrombosis [None]
  - Intracardiac thrombus [None]

NARRATIVE: CASE EVENT DATE: 20210707
